FAERS Safety Report 7597608-1 (Version None)
Quarter: 2011Q3

REPORT INFORMATION
  Report Type: 
  Country: None (occurrence: None)
  Receive Date: 20110708
  Receipt Date: 20110627
  Transmission Date: 20111222
  Serious: Yes (Life-Threatening, Hospitalization)
  Sender: FDA-Public Use
  Company Number: DE-ROCHE-786544

PATIENT
  Age: 69 Year
  Sex: Female

DRUGS (15)
  1. FOLIC ACID [Concomitant]
  2. CALCIUM CARBONATE [Concomitant]
  3. KALINOR RETARD [Concomitant]
  4. HYDROXYCHLOROQUINE SULFATE [Concomitant]
     Route: 048
  5. BISOPROLOL FUMARATE [Concomitant]
  6. LEVOTHYROXINE SODIUM [Concomitant]
  7. TOCILIZUMAB [Suspect]
     Route: 065
     Dates: start: 20100501
  8. METHOTREXATE [Suspect]
     Route: 058
     Dates: start: 20071101
  9. OMEPRAZOLE [Concomitant]
  10. PREDNISOLONE [Suspect]
     Route: 048
  11. DEKRISTOL [Concomitant]
  12. HYDROCHLOROTHIAZIDE [Concomitant]
  13. ACTONEL [Concomitant]
  14. REMICADE [Suspect]
     Route: 042
     Dates: start: 20100727
  15. TORSEMIDE [Concomitant]

REACTIONS (2)
  - DIARRHOEA [None]
  - ESCHERICHIA SEPSIS [None]
